FAERS Safety Report 4445750-6 (Version None)
Quarter: 2004Q3

REPORT INFORMATION
  Report Type: 
  Country: None (occurrence: None)
  Receive Date: 20040910
  Receipt Date: 20040901
  Transmission Date: 20050211
  Serious: Yes (Death, Other)
  Sender: FDA-Public Use
  Company Number: GB-JNJFOC-20040707577

PATIENT
  Age: 62 Year
  Sex: Female

DRUGS (8)
  1. DURAGESIC [Suspect]
     Indication: PAIN
     Route: 062
  2. OMEPRAZOLE [Concomitant]
  3. SERTRALINE HCL [Concomitant]
  4. THYROXINE [Concomitant]
  5. PARACETAMOL [Concomitant]
     Indication: PAIN
  6. DEXAMETHASONE [Concomitant]
  7. METHOCARBAMOL [Concomitant]
  8. MEGESTROL [Concomitant]

REACTIONS (6)
  - ALANINE AMINOTRANSFERASE INCREASED [None]
  - ASPARTATE AMINOTRANSFERASE INCREASED [None]
  - BLOOD ALKALINE PHOSPHATASE INCREASED [None]
  - BLOOD POTASSIUM INCREASED [None]
  - CONVULSION [None]
  - GAMMA-GLUTAMYLTRANSFERASE INCREASED [None]
